FAERS Safety Report 10526983 (Version 1)
Quarter: 2014Q4

REPORT INFORMATION
  Report Type: Spontaneous
  Country: CH (occurrence: CH)
  Receive Date: 20141020
  Receipt Date: 20141020
  Transmission Date: 20150528
  Serious: Yes (Other)
  Sender: FDA-Public Use
  Company Number: CH-ROCHE-1471966

PATIENT
  Age: 33 Year
  Sex: Female
  Weight: 60 kg

DRUGS (10)
  1. VALIUM [Suspect]
     Active Substance: DIAZEPAM
     Route: 048
     Dates: start: 20140212, end: 20140213
  2. NEXIUM [Concomitant]
     Active Substance: ESOMEPRAZOLE MAGNESIUM
     Route: 065
     Dates: start: 20140204
  3. VALIUM [Suspect]
     Active Substance: DIAZEPAM
     Indication: PRODUCT USED FOR UNKNOWN INDICATION
     Route: 048
     Dates: start: 20140127, end: 20140213
  4. SEROQUEL XR [Suspect]
     Active Substance: QUETIAPINE FUMARATE
     Indication: PRODUCT USED FOR UNKNOWN INDICATION
     Route: 048
     Dates: start: 20140211
  5. TRITTICO [Concomitant]
     Active Substance: TRAZODONE HYDROCHLORIDE
     Route: 065
     Dates: start: 20140204
  6. VALIUM [Suspect]
     Active Substance: DIAZEPAM
     Route: 048
     Dates: start: 20140210, end: 20140211
  7. SEROQUEL [Suspect]
     Active Substance: QUETIAPINE FUMARATE
     Indication: PRODUCT USED FOR UNKNOWN INDICATION
     Route: 048
     Dates: start: 20140127, end: 20140129
  8. VALIUM [Suspect]
     Active Substance: DIAZEPAM
     Route: 048
     Dates: start: 20140204, end: 20140209
  9. SEROQUEL XR [Suspect]
     Active Substance: QUETIAPINE FUMARATE
     Route: 048
     Dates: start: 20140212
  10. SERALIN [Concomitant]
     Route: 065
     Dates: start: 20140212

REACTIONS (1)
  - Weight increased [Not Recovered/Not Resolved]

NARRATIVE: CASE EVENT DATE: 20140128
